FAERS Safety Report 19552696 (Version 2)
Quarter: 2021Q3

REPORT INFORMATION
  Report Type: Spontaneous
  Country: US (occurrence: US)
  Receive Date: 20210715
  Receipt Date: 20210813
  Transmission Date: 20211014
  Serious: No
  Sender: FDA-Public Use
  Company Number: US-PFIZER INC-2021712104

PATIENT
  Age: 13 Year
  Sex: Male

DRUGS (1)
  1. GENOTROPIN [Suspect]
     Active Substance: SOMATROPIN
     Indication: GROWTH DISORDER
     Dosage: 2.2 MG BY INJECTION NIGHTLY
     Dates: start: 2019

REACTIONS (3)
  - Drug dose omission by device [Unknown]
  - Expired device used [Unknown]
  - Device information output issue [Unknown]

NARRATIVE: CASE EVENT DATE: 2021
